FAERS Safety Report 8166206-3 (Version None)
Quarter: 2012Q1

REPORT INFORMATION
  Report Type: 
  Country: None (occurrence: None)
  Receive Date: 20120227
  Receipt Date: 20110518
  Transmission Date: 20120608
  Serious: No
  Sender: FDA-Public Use
  Company Number: US-MYLANLABS-2011S1009218

PATIENT
  Age: 17 Year
  Sex: Male
  Weight: 70.31 kg

DRUGS (2)
  1. AMNESTEEM [Suspect]
     Indication: ACNE
     Route: 048
     Dates: start: 20110218, end: 20110318
  2. AMNESTEEM [Suspect]
     Route: 048
     Dates: start: 20110318

REACTIONS (1)
  - EPISTAXIS [None]
